FAERS Safety Report 6289668-5 (Version None)
Quarter: 2009Q3

REPORT INFORMATION
  Report Type: 
  Country: None (occurrence: None)
  Receive Date: 20090730
  Receipt Date: 20080606
  Transmission Date: 20100115
  Serious: Yes (Hospitalization)
  Sender: FDA-Public Use
  Company Number: US-BRISTOL-MYERS SQUIBB COMPANY-14218887

PATIENT
  Age: 69 Year
  Sex: Male

DRUGS (7)
  1. COUMADIN [Suspect]
     Dosage: 2 DOSAGE FORM = 2 TABLETS OF 2.5 MG.
     Dates: start: 20080311, end: 20080315
  2. LOVENOX [Suspect]
     Indication: THROMBOSIS PROPHYLAXIS
     Route: 058
     Dates: start: 20080313, end: 20080315
  3. METOPROLOL TARTRATE [Suspect]
     Dosage: 1 DOSAGE FORM = 1 TABLET OF 100 MG.
     Dates: start: 20080305, end: 20080315
  4. FUROSEMIDE [Suspect]
     Dosage: 1 DOSAGE FORM = 1 TABLET OF 20 MG.
     Dates: start: 20080305, end: 20080315
  5. SIMVASTATIN [Suspect]
     Dosage: 1 DOSAGE FORM = 1 TABLET OF 40 MG AT BEDTIME. ALSO GIVEN FROM 11-MAR-2008 - 15-MAR-2008.
     Dates: start: 20080305, end: 20080315
  6. ASPIRIN [Suspect]
     Dosage: 1 DOSAGE FORM = 1 TABLET OF 81 MG.
     Dates: start: 20080305, end: 20080315
  7. NIFEREX [Suspect]
     Dosage: 1 DOSAGE FORM = 1 TABLET.

REACTIONS (1)
  - HAEMORRHAGE INTRACRANIAL [None]
